FAERS Safety Report 6465747-4 (Version None)
Quarter: 2009Q4

REPORT INFORMATION
  Report Type: 
  Country: None (occurrence: None)
  Receive Date: 20091201
  Receipt Date: 20091124
  Transmission Date: 20100525
  Serious: Yes (Hospitalization, Other)
  Sender: FDA-Public Use
  Company Number: US-AMGEN-QUU372572

PATIENT
  Sex: Female
  Weight: 84.4 kg

DRUGS (3)
  1. ENBREL [Suspect]
     Indication: PSORIATIC ARTHROPATHY
     Route: 058
  2. ENBREL [Suspect]
     Indication: PSORIASIS
  3. HYDROXYCHLOROQUINE SULFATE [Concomitant]
     Route: 048

REACTIONS (2)
  - OSTEOARTHRITIS [None]
  - SKIN CANCER [None]
